FAERS Safety Report 25396620 (Version 1)
Quarter: 2025Q2

REPORT INFORMATION
  Report Type: Spontaneous
  Country: US (occurrence: None)
  Receive Date: 20250604
  Receipt Date: 20250604
  Transmission Date: 20250716
  Serious: Yes (Disabling)
  Sender: FDA-CTU
  Company Number: None

PATIENT
  Age: 56 Year
  Sex: Male
  Weight: 94.5 kg

DRUGS (1)
  1. VENLAFAXINE [Suspect]
     Active Substance: VENLAFAXINE HYDROCHLORIDE
     Indication: Adjustment disorder with depressed mood
     Route: 048
     Dates: start: 20070101, end: 20170901

REACTIONS (1)
  - Tardive akathisia [None]

NARRATIVE: CASE EVENT DATE: 20170901
